FAERS Safety Report 5136904-4 (Version None)
Quarter: 2006Q4

REPORT INFORMATION
  Report Type: 
  Country: None (occurrence: None)
  Receive Date: 20061023
  Receipt Date: 20061012
  Transmission Date: 20070319
  Serious: Yes (Hospitalization, Other)
  Sender: FDA-Public Use
  Company Number: 2006126183

PATIENT
  Age: 76 Year
  Sex: Male

DRUGS (7)
  1. LIPITOR [Suspect]
     Indication: HYPERCHOLESTEROLAEMIA
     Dosage: (10 MG,), ORAL
     Route: 048
     Dates: start: 20020101
  2. ANTIBIOTICS (ANTIBIOTICS) [Suspect]
     Indication: DRUG USE FOR UNKNOWN INDICATION
  3. SYNTHROID [Concomitant]
  4. AVANDIA [Concomitant]
  5. OXAZEPAM [Concomitant]
  6. ASPIRIN [Concomitant]
  7. DIABETA [Concomitant]

REACTIONS (7)
  - ABDOMINAL DISTENSION [None]
  - BLOOD DISORDER [None]
  - CONVULSION [None]
  - DRUG INTERACTION [None]
  - DYSPEPSIA [None]
  - HIGH DENSITY LIPOPROTEIN DECREASED [None]
  - LUNG DISORDER [None]
